FAERS Safety Report 5425381-1 (Version None)
Quarter: 2007Q3

REPORT INFORMATION
  Report Type: 
  Country: None (occurrence: None)
  Receive Date: 20070824
  Receipt Date: 20070824
  Transmission Date: 20080115
  Serious: Yes (Hospitalization)
  Sender: FDA-Public Use
  Company Number: DE-ROXANE LABORATORIES, INC-2007-DE-04906GD

PATIENT
  Age: 19 Year
  Sex: Female

DRUGS (6)
  1. PARACETAMOL [Suspect]
  2. COCAINE [Suspect]
  3. SALICYLIC ACID [Suspect]
  4. THC-COOH [Suspect]
  5. METOCLOPRAMIDE [Suspect]
  6. OTHER ANALGESICS [Suspect]

REACTIONS (5)
  - ABDOMINAL PAIN [None]
  - ACIDOSIS [None]
  - DRUG TOXICITY [None]
  - HEPATIC FAILURE [None]
  - RENAL FAILURE [None]
